FAERS Safety Report 17006821 (Version 1)
Quarter: 2019Q4

REPORT INFORMATION
  Report Type: Spontaneous
  Country: US (occurrence: US)
  Receive Date: 20191107
  Receipt Date: 20191107
  Transmission Date: 20200122
  Serious: Yes (Other)
  Sender: FDA-Public Use
  Company Number: US-VIFOR (INTERNATIONAL) INC.-VIT-2019-12650

PATIENT
  Age: 66 Year
  Sex: Male

DRUGS (2)
  1. VELTASSA [Suspect]
     Active Substance: PATIROMER
     Indication: HYPERKALAEMIA
     Route: 048
     Dates: start: 20190628
  2. LYRICA [Concomitant]
     Active Substance: PREGABALIN

REACTIONS (2)
  - Product dose omission [Unknown]
  - Eye operation [Not Recovered/Not Resolved]

NARRATIVE: CASE EVENT DATE: 201911
